FAERS Safety Report 5063584-9 (Version None)
Quarter: 2006Q3

REPORT INFORMATION
  Report Type: 
  Country: None (occurrence: None)
  Receive Date: 20060727
  Receipt Date: 20060719
  Transmission Date: 20061208
  Serious: Yes (Other)
  Sender: FDA-Public Use
  Company Number: PHEH2006US09300

PATIENT
  Age: 53 Year
  Sex: Male

DRUGS (1)
  1. DIOVAN [Suspect]
     Dosage: 40 MG, QD
     Route: 048

REACTIONS (7)
  - DEPRESSION [None]
  - HIP ARTHROPLASTY [None]
  - MOBILITY DECREASED [None]
  - NERVE INJURY [None]
  - OSTEONECROSIS [None]
  - PAIN [None]
  - ROAD TRAFFIC ACCIDENT [None]
